FAERS Safety Report 8494514-5 (Version None)
Quarter: 2012Q3

REPORT INFORMATION
  Report Type: 
  Country: None (occurrence: None)
  Receive Date: 20120709
  Receipt Date: 20120703
  Transmission Date: 20120928
  Serious: Yes (Hospitalization)
  Sender: FDA-Public Use
  Company Number: US-SANOFI-AVENTIS-2012SA047704

PATIENT
  Age: 65 Year
  Sex: Male

DRUGS (2)
  1. METFORMIN HCL [Concomitant]
  2. LANTUS [Suspect]
     Dosage: 26 TO 28 UNITS DAILY
     Route: 058

REACTIONS (2)
  - CEREBROVASCULAR ACCIDENT [None]
  - BLOOD GLUCOSE FLUCTUATION [None]
